FAERS Safety Report 5860500-4 (Version None)
Quarter: 2008Q3

REPORT INFORMATION
  Report Type: 
  Country: None (occurrence: None)
  Receive Date: 20080827
  Receipt Date: 20070924
  Transmission Date: 20090109
  Serious: No
  Sender: FDA-Public Use
  Company Number: US-ABBOTT-07P-163-0418189-00

PATIENT
  Sex: Male

DRUGS (2)
  1. COATED PDS [Suspect]
     Indication: DRUG USE FOR UNKNOWN INDICATION
     Dosage: ORANGE COATED
     Route: 048
  2. COATED PDS [Suspect]
     Dosage: WHITE
     Route: 048

REACTIONS (1)
  - MEDICATION RESIDUE [None]
